FAERS Safety Report 7608390-3 (Version None)
Quarter: 2011Q3

REPORT INFORMATION
  Report Type: 
  Country: None (occurrence: None)
  Receive Date: 20110713
  Receipt Date: 20110713
  Transmission Date: 20111222
  Serious: Yes (Hospitalization)
  Sender: FDA-Public Use
  Company Number: None

PATIENT
  Sex: Female
  Weight: 76.8393 kg

DRUGS (2)
  1. NORDITROPIN [Suspect]
     Indication: GROWTH HORMONE DEFICIENCY
     Dosage: 0.5MG QD SQ
     Route: 058
     Dates: start: 20100101
  2. NORDITROPIN [Suspect]
     Indication: HYPOPHYSITIS
     Dosage: 0.5MG QD SQ
     Route: 058
     Dates: start: 20100101

REACTIONS (2)
  - LUMBAR VERTEBRAL FRACTURE [None]
  - FALL [None]
